FAERS Safety Report 9524959 (Version 1)
Quarter: 2013Q3

REPORT INFORMATION
  Report Type: Spontaneous
  Country: US (occurrence: US)
  Receive Date: 20130916
  Receipt Date: 20130916
  Transmission Date: 20140515
  Serious: Yes (Other)
  Sender: FDA-Public Use
  Company Number: US-PFIZER INC-2013262410

PATIENT
  Sex: Female

DRUGS (3)
  1. PREMARIN [Suspect]
     Route: 067
  2. PREMPRO [Suspect]
  3. CELEBREX [Suspect]

REACTIONS (2)
  - Joint injury [Unknown]
  - Dry skin [Unknown]
